FAERS Safety Report 15143807 (Version 1)
Quarter: 2018Q3

REPORT INFORMATION
  Report Type: Spontaneous
  Country: US (occurrence: US)
  Receive Date: 20180713
  Receipt Date: 20180713
  Transmission Date: 20181010
  Serious: Yes (Death)
  Sender: FDA-Public Use
  Company Number: US-AMGEN-USASP2011001763

PATIENT
  Age: 85 Year
  Sex: Female

DRUGS (6)
  1. EPOGEN [Suspect]
     Active Substance: ERYTHROPOIETIN
     Indication: END STAGE RENAL DISEASE
     Dates: start: 200906, end: 20100110
  2. EPOGEN [Suspect]
     Active Substance: ERYTHROPOIETIN
     Dates: start: 200906, end: 20100110
  3. EPOGEN [Suspect]
     Active Substance: ERYTHROPOIETIN
     Dates: start: 200906, end: 20100110
  4. EPOGEN [Suspect]
     Active Substance: ERYTHROPOIETIN
     Dates: start: 200906, end: 20100110
  5. EPOGEN [Suspect]
     Active Substance: ERYTHROPOIETIN
     Dates: start: 200906, end: 20100110
  6. EPOGEN [Suspect]
     Active Substance: ERYTHROPOIETIN
     Dates: start: 200906, end: 20100110

REACTIONS (1)
  - Cerebrovascular accident [Fatal]

NARRATIVE: CASE EVENT DATE: 20100110
